FAERS Safety Report 23381913 (Version 16)
Quarter: 2025Q2

REPORT INFORMATION
  Report Type: Spontaneous
  Country: CA (occurrence: CA)
  Receive Date: 20240109
  Receipt Date: 20250417
  Transmission Date: 20250716
  Serious: Yes (Other)
  Sender: CELLTRION
  Company Number: CA-CELLTRION INC.-2023CA025354

PATIENT

DRUGS (38)
  1. INFLECTRA [Suspect]
     Active Substance: INFLIXIMAB-DYYB
     Indication: Ankylosing spondylitis
     Route: 042
     Dates: start: 20190318, end: 20190819
  2. INFLECTRA [Suspect]
     Active Substance: INFLIXIMAB-DYYB
     Route: 042
     Dates: start: 20191007
  3. INFLECTRA [Suspect]
     Active Substance: INFLIXIMAB-DYYB
     Route: 042
     Dates: start: 20231227
  4. INFLECTRA [Suspect]
     Active Substance: INFLIXIMAB-DYYB
     Route: 042
     Dates: start: 20240207
  5. INFLECTRA [Suspect]
     Active Substance: INFLIXIMAB-DYYB
     Route: 042
     Dates: start: 20240320, end: 20240320
  6. INFLECTRA [Suspect]
     Active Substance: INFLIXIMAB-DYYB
     Route: 042
     Dates: start: 20240501, end: 20240501
  7. INFLECTRA [Suspect]
     Active Substance: INFLIXIMAB-DYYB
     Route: 042
     Dates: start: 20240612
  8. INFLECTRA [Suspect]
     Active Substance: INFLIXIMAB-DYYB
     Route: 042
     Dates: start: 20240724
  9. INFLECTRA [Suspect]
     Active Substance: INFLIXIMAB-DYYB
     Route: 042
     Dates: start: 20240905
  10. INFLECTRA [Suspect]
     Active Substance: INFLIXIMAB-DYYB
     Route: 042
     Dates: start: 20241023
  11. INFLECTRA [Suspect]
     Active Substance: INFLIXIMAB-DYYB
     Route: 042
     Dates: start: 20241204
  12. INFLECTRA [Suspect]
     Active Substance: INFLIXIMAB-DYYB
     Route: 042
     Dates: start: 20250115
  13. INFLECTRA [Suspect]
     Active Substance: INFLIXIMAB-DYYB
     Route: 042
     Dates: start: 20250226
  14. INFLECTRA [Suspect]
     Active Substance: INFLIXIMAB-DYYB
     Route: 042
     Dates: start: 20250409
  15. ACETAMINOPHEN [Concomitant]
     Active Substance: ACETAMINOPHEN
     Indication: Premedication
     Dates: start: 20240501, end: 20240501
  16. BENADRYL [Concomitant]
     Active Substance: DIPHENHYDRAMINE HYDROCHLORIDE
     Indication: Premedication
     Route: 042
     Dates: start: 20241023, end: 20241023
  17. BRICANYL [Concomitant]
     Active Substance: TERBUTALINE SULFATE
  18. CELEBREX [Concomitant]
     Active Substance: CELECOXIB
  19. DIMENHYDRINATE [Concomitant]
     Active Substance: DIMENHYDRINATE
     Indication: Premedication
     Dates: start: 20240501, end: 20240501
  20. DIPHENHYDRAMINE [Concomitant]
     Active Substance: DIPHENHYDRAMINE
     Indication: Premedication
     Dates: start: 20240501, end: 20240501
  21. CEFIXIME [Concomitant]
     Active Substance: CEFIXIME
  22. FLUCONAZOLE [Concomitant]
     Active Substance: FLUCONAZOLE
     Indication: Fungal infection
  23. GRAVOL [Concomitant]
     Active Substance: DIMENHYDRINATE
     Indication: Premedication
     Route: 042
     Dates: start: 20241023, end: 20241023
  24. HYDROCORTISONE [Concomitant]
     Active Substance: HYDROCORTISONE
     Indication: Premedication
     Dates: start: 20240501, end: 20240501
  25. HYDROMORPHONE [Concomitant]
     Active Substance: HYDROMORPHONE
  26. LOSARTAN [Concomitant]
     Active Substance: LOSARTAN
  27. MARVELON [Concomitant]
     Active Substance: DESOGESTREL\ETHINYL ESTRADIOL
  28. MAXALT [Concomitant]
     Active Substance: RIZATRIPTAN BENZOATE
  29. MELATONIN [Concomitant]
     Active Substance: MELATONIN
  30. METHOTREXATE [Concomitant]
     Active Substance: METHOTREXATE
     Route: 065
  31. NASONEX [Concomitant]
     Active Substance: MOMETASONE FUROATE
  32. NORVASC [Concomitant]
     Active Substance: AMLODIPINE BESYLATE
  33. NYSTATIN [Concomitant]
     Active Substance: NYSTATIN
     Indication: Fungal infection
  34. PULMICORT TURBUHALER [Concomitant]
     Active Substance: BUDESONIDE
  35. PREDNISONE [Concomitant]
     Active Substance: PREDNISONE
     Route: 065
  36. RABEPRAZOLE [Concomitant]
     Active Substance: RABEPRAZOLE
  37. SERTRALINE [Concomitant]
     Active Substance: SERTRALINE HYDROCHLORIDE
  38. ZOPICLONE [Concomitant]
     Active Substance: ZOPICLONE

REACTIONS (19)
  - Central venous catheterisation [Recovering/Resolving]
  - Type 2 diabetes mellitus [Recovering/Resolving]
  - Oedema [Recovered/Resolved]
  - Poor venous access [Unknown]
  - Vein disorder [Unknown]
  - Unresponsive to stimuli [Recovered/Resolved]
  - Muscle spasms [Recovered/Resolved]
  - Oedema peripheral [Recovered/Resolved]
  - Blood pressure increased [Recovered/Resolved]
  - Dyspnoea [Recovered/Resolved]
  - Cholelithiasis [Unknown]
  - Poor venous access [Unknown]
  - Abdominal pain [Recovered/Resolved]
  - Neck pain [Recovered/Resolved]
  - Epistaxis [Recovered/Resolved]
  - Arthralgia [Recovered/Resolved]
  - Nasopharyngitis [Unknown]
  - Blood pressure increased [Unknown]
  - Off label use [Unknown]

NARRATIVE: CASE EVENT DATE: 20231228
